FAERS Safety Report 6062680-7 (Version None)
Quarter: 2009Q1

REPORT INFORMATION
  Report Type: 
  Country: None (occurrence: None)
  Receive Date: 20090203
  Receipt Date: 20090127
  Transmission Date: 20090719
  Serious: Yes (Hospitalization)
  Sender: FDA-Public Use
  Company Number: US-KINGPHARMUSA00001-K200900082

PATIENT
  Age: 74 Year
  Sex: Male

DRUGS (7)
  1. ALTACE [Suspect]
     Indication: HYPERTENSION
     Dosage: 10 MG, QD
     Route: 048
  2. TOPALGIC LP [Suspect]
     Dosage: 200 MG, QD
     Route: 048
     Dates: start: 20081101
  3. DOLIPRANE [Suspect]
     Indication: HYPERTHERMIA
     Dosage: 1000 MG, QD
     Route: 048
     Dates: start: 20081121, end: 20081122
  4. CARDENSIEL [Suspect]
     Indication: HYPERTENSION
     Dosage: 1.25 MG, QD
     Route: 048
  5. AREDIA [Suspect]
     Indication: COMPLEX REGIONAL PAIN SYNDROME
     Dosage: 80 MG, QD
     Route: 042
     Dates: start: 20081121, end: 20081122
  6. ZYLORIC                            /00003301/ [Suspect]
     Indication: BLOOD URIC ACID INCREASED
     Dosage: 200 MG, QD
     Route: 048
  7. SINTROM [Suspect]
     Indication: ARRHYTHMIA
     Dosage: UNK

REACTIONS (3)
  - ACUTE CORONARY SYNDROME [None]
  - CHEST DISCOMFORT [None]
  - MYELOPROLIFERATIVE DISORDER [None]
